FAERS Safety Report 23159293 (Version 1)
Quarter: 2023Q4

REPORT INFORMATION
  Report Type: Spontaneous
  Country: FR (occurrence: FR)
  Receive Date: 20231108
  Receipt Date: 20231108
  Transmission Date: 20240109
  Serious: Yes (Disabling)
  Sender: FDA-Public Use
  Company Number: FR-Korea IPSEN-2023-25154

PATIENT
  Sex: Male

DRUGS (1)
  1. CABOMETYX [Suspect]
     Active Substance: CABOZANTINIB S-MALATE
     Indication: Product used for unknown indication
     Dosage: 40 MG
     Route: 065
     Dates: start: 202307

REACTIONS (3)
  - Gait disturbance [Unknown]
  - Palmar-plantar erythrodysaesthesia syndrome [Unknown]
  - Condition aggravated [Unknown]
